FAERS Safety Report 18124069 (Version 1)
Quarter: 2020Q3

REPORT INFORMATION
  Report Type: Spontaneous
  Country: US (occurrence: US)
  Receive Date: 20200807
  Receipt Date: 20200807
  Transmission Date: 20201103
  Serious: No
  Sender: FDA-Public Use
  Company Number: None

PATIENT
  Age: 18 Year
  Sex: Male

DRUGS (1)
  1. LITHIUM ORAL SOLUTION (LITHIUM CARBONATE) [Suspect]
     Active Substance: LITHIUM CARBONATE
     Indication: BIPOLAR DISORDER
     Dosage: ?          OTHER FREQUENCY:BID OR TID;?
     Route: 048

REACTIONS (5)
  - Antipsychotic drug level increased [None]
  - Incorrect dose administered [None]
  - Product label confusion [None]
  - Dose calculation error [None]
  - Transcription medication error [None]

NARRATIVE: CASE EVENT DATE: 20200805
